FAERS Safety Report 9684696 (Version 1)
Quarter: 2013Q4

REPORT INFORMATION
  Report Type: Spontaneous
  Country: US (occurrence: US)
  Receive Date: 20131112
  Receipt Date: 20131112
  Transmission Date: 20140711
  Serious: Yes (Hospitalization)
  Sender: FDA-Public Use
  Company Number: US-009507513-1311USA002581

PATIENT
  Sex: Female

DRUGS (2)
  1. JANUVIA [Suspect]
  2. JANUMET [Suspect]

REACTIONS (2)
  - Amylase increased [Unknown]
  - Lipase increased [Unknown]
